FAERS Safety Report 7790152-8 (Version None)
Quarter: 2011Q3

REPORT INFORMATION
  Report Type: 
  Country: None (occurrence: None)
  Receive Date: 20110930
  Receipt Date: 20101110
  Transmission Date: 20111222
  Serious: No
  Sender: FDA-Public Use
  Company Number: AE-ASTRAZENECA-2010SE53639

PATIENT
  Sex: Female
  Weight: 67.6 kg

DRUGS (3)
  1. ARIMIDEX [Suspect]
     Indication: BREAST CANCER
     Route: 048
     Dates: start: 20080101
  2. LEVOTHYROXINE [Concomitant]
     Indication: HYPOTHYROIDISM
  3. BISAITAEM [Concomitant]
     Indication: BLOOD PRESSURE ABNORMAL

REACTIONS (2)
  - TUMOUR MARKER INCREASED [None]
  - DRUG INEFFECTIVE [None]
